FAERS Safety Report 24550058 (Version 1)
Quarter: 2024Q4

REPORT INFORMATION
  Report Type: Spontaneous
  Country: RO (occurrence: RO)
  Receive Date: 20241025
  Receipt Date: 20241025
  Transmission Date: 20250115
  Serious: Yes (Other)
  Sender: ABBVIE
  Company Number: RO-JNJFOC-20241009735

PATIENT
  Age: 59 Year
  Sex: Female

DRUGS (1)
  1. IMBRUVICA [Suspect]
     Active Substance: IBRUTINIB
     Indication: Mantle cell lymphoma
     Route: 048
     Dates: start: 201601

REACTIONS (11)
  - Aspartate aminotransferase increased [Unknown]
  - Ecchymosis [Unknown]
  - Glomerular filtration rate decreased [Unknown]
  - Lymphocyte morphology abnormal [Unknown]
  - Lymphadenopathy [Unknown]
  - Head discomfort [Unknown]
  - Light chain analysis increased [Unknown]
  - Lymphadenopathy [Unknown]
  - Alanine aminotransferase increased [Unknown]
  - Blood bilirubin increased [Unknown]
  - Blood creatinine increased [Unknown]
